FAERS Safety Report 22669843 (Version 3)
Quarter: 2023Q4

REPORT INFORMATION
  Report Type: Spontaneous
  Country: DE (occurrence: DE)
  Receive Date: 20230704
  Receipt Date: 20231003
  Transmission Date: 20240110
  Serious: Yes (Death, Hospitalization, Other)
  Sender: FDA-Public Use
  Company Number: DE-BRISTOL-MYERS SQUIBB COMPANY-2023-093041

PATIENT
  Age: 77 Year
  Sex: Male
  Weight: 75 kg

DRUGS (2)
  1. LUSPATERCEPT [Suspect]
     Active Substance: LUSPATERCEPT
     Indication: Myelofibrosis
     Dosage: DOSE : 1MG/KG;     FREQ : UNAVAILABLE
     Dates: start: 20220913
  2. LUSPATERCEPT [Suspect]
     Active Substance: LUSPATERCEPT
     Route: 058
     Dates: start: 20220913, end: 20221005

REACTIONS (3)
  - COVID-19 [Fatal]
  - Respiratory failure [Unknown]
  - Off label use [Unknown]

NARRATIVE: CASE EVENT DATE: 20221006
